FAERS Safety Report 9434478 (Version 4)
Quarter: 2014Q2

REPORT INFORMATION
  Report Type: Spontaneous
  Country: TW (occurrence: TW)
  Receive Date: 20130801
  Receipt Date: 20140509
  Transmission Date: 20141212
  Serious: Yes (Other)
  Sender: FDA-Public Use
  Company Number: TW-JNJFOC-20130715464

PATIENT
  Age: 69 Year
  Sex: Female
  Weight: 38 kg

DRUGS (1)
  1. SIMPONI [Suspect]
     Indication: RHEUMATOID ARTHRITIS
     Dosage: FOR 9 MONTHS
     Route: 058
     Dates: start: 20121203, end: 20130719

REACTIONS (1)
  - Pulmonary tuberculosis [Not Recovered/Not Resolved]
